FAERS Safety Report 12923110 (Version 1)
Quarter: 2016Q4

REPORT INFORMATION
  Report Type: Spontaneous
  Country: US (occurrence: US)
  Receive Date: 20161109
  Receipt Date: 20161109
  Transmission Date: 20170207
  Serious: No
  Sender: FDA-Public Use
  Company Number: None

PATIENT

DRUGS (2)
  1. READY-TO-USE ENEMA [Suspect]
     Active Substance: SODIUM PHOSPHATE, DIBASIC\SODIUM PHOSPHATE, MONOBASIC
     Dosage: READY TO USE ENEMA - DOSAGE FORM - LIQUID 4.5 FLUID OZ. - ROUTE - RECTAL
     Route: 054
  2. FLEET MINERAL OIL [Suspect]
     Active Substance: MINERAL OIL
     Dosage: MINERAL OIL - DOSAGE FORM - OIL - ROUTE - RECTAL
     Route: 054

REACTIONS (2)
  - Drug dispensing error [None]
  - Product label confusion [None]
